FAERS Safety Report 8548917-0 (Version None)
Quarter: 2012Q3

REPORT INFORMATION
  Report Type: 
  Country: None (occurrence: None)
  Receive Date: 20120730
  Receipt Date: 20120726
  Transmission Date: 20120928
  Serious: Yes (Death, Other)
  Sender: FDA-Public Use
  Company Number: PHHY2012PL064332

PATIENT

DRUGS (1)
  1. ZOLEDRONOC ACID [Suspect]
     Dosage: UNK UKN, UNK

REACTIONS (3)
  - DEATH [None]
  - NEOPLASM PROGRESSION [None]
  - NEOPLASM MALIGNANT [None]
